FAERS Safety Report 18590530 (Version 1)
Quarter: 2020Q4

REPORT INFORMATION
  Report Type: Spontaneous
  Country: DK (occurrence: DK)
  Receive Date: 20201208
  Receipt Date: 20201208
  Transmission Date: 20210114
  Serious: Yes (Hospitalization)
  Sender: FDA-Public Use
  Company Number: DK-ASTRAZENECA-2020SF61324

PATIENT
  Age: 1 Month
  Sex: Female
  Weight: 10 kg

DRUGS (1)
  1. NEXIUM [Suspect]
     Active Substance: ESOMEPRAZOLE MAGNESIUM
     Indication: GASTROOESOPHAGEAL REFLUX DISEASE
     Route: 048
     Dates: start: 20191022, end: 20200322

REACTIONS (2)
  - Constipation [Recovered/Resolved]
  - Akathisia [Recovered/Resolved]

NARRATIVE: CASE EVENT DATE: 20191101
